FAERS Safety Report 9348279 (Version 4)
Quarter: 2014Q2

REPORT INFORMATION
  Report Type: Spontaneous
  Country: US (occurrence: US)
  Receive Date: 20130614
  Receipt Date: 20140425
  Transmission Date: 20141212
  Serious: Yes (Hospitalization, Other)
  Sender: FDA-Public Use
  Company Number: US-009507513-1306USA004339

PATIENT
  Sex: Male

DRUGS (4)
  1. PROPECIA [Suspect]
     Indication: ALOPECIA
     Dosage: 1 MG, QD
     Route: 048
     Dates: start: 20010122, end: 20030221
  2. PROPECIA [Suspect]
     Dosage: 1 MG, QD
     Route: 048
     Dates: start: 20040130, end: 20041227
  3. PROPECIA [Suspect]
     Dosage: 1 MG, QD
     Route: 048
     Dates: start: 20050609, end: 20080702
  4. PROPECIA [Suspect]
     Dosage: 1 MG, QOD
     Route: 048

REACTIONS (54)
  - Cartilage injury [Unknown]
  - Joint surgery [Unknown]
  - Benign prostatic hyperplasia [Unknown]
  - Neck pain [Unknown]
  - Epididymal cyst [Unknown]
  - Hydrocele [Unknown]
  - Melanocytic naevus [Unknown]
  - Skin papilloma [Unknown]
  - Skin papilloma [Unknown]
  - Acne [Unknown]
  - Mole excision [Unknown]
  - Eyelid cyst [Unknown]
  - Inappropriate schedule of drug administration [Unknown]
  - Anogenital warts [Unknown]
  - Dysuria [Unknown]
  - Urethritis noninfective [Unknown]
  - Muscle operation [Unknown]
  - Chondroplasty [Unknown]
  - Joint dislocation [Unknown]
  - Joint dislocation reduction [Unknown]
  - Femoral nerve injury [Unknown]
  - Insomnia [Unknown]
  - Anxiety [Unknown]
  - Dyspepsia [Unknown]
  - Dysphagia [Unknown]
  - Cluster headache [Unknown]
  - Cartilage injury [Unknown]
  - Femoroacetabular impingement [Unknown]
  - Neuropathy peripheral [Unknown]
  - Occipital neuralgia [Unknown]
  - Cardiac murmur functional [Unknown]
  - Spondylolisthesis [Unknown]
  - Pneumonia [Unknown]
  - Tonsillectomy [Unknown]
  - Arthroscopy [Unknown]
  - Oesophageal ulcer [Unknown]
  - Sexual dysfunction [Not Recovered/Not Resolved]
  - Erectile dysfunction [Not Recovered/Not Resolved]
  - Folliculitis [Unknown]
  - Musculoskeletal pain [Unknown]
  - Cyst removal [Unknown]
  - Mole excision [Unknown]
  - Cyst [Unknown]
  - Anogenital warts [Unknown]
  - Cryotherapy [Unknown]
  - Fibrous histiocytoma [Unknown]
  - Milia [Unknown]
  - Eyelid operation [Unknown]
  - Urinary hesitation [Unknown]
  - Growth hormone deficiency [Unknown]
  - Androgen deficiency [Unknown]
  - Drug ineffective [Unknown]
  - Surgery [Unknown]
  - Urinary hesitation [Unknown]
